FAERS Safety Report 17277654 (Version 2)
Quarter: 2020Q1

REPORT INFORMATION
  Report Type: Report from Study
  Country: CO (occurrence: CO)
  Receive Date: 20200116
  Receipt Date: 20200217
  Transmission Date: 20200409
  Serious: Yes (Other)
  Sender: FDA-Public Use
  Company Number: NVSC2020CO004428

PATIENT
  Age: 50 Year
  Sex: Female
  Weight: 84 kg

DRUGS (13)
  1. GOSERELIN [Concomitant]
     Active Substance: GOSERELIN
     Indication: BREAST CANCER
     Dosage: UNK UNK, QMO
     Route: 058
  2. FEMARA [Suspect]
     Active Substance: LETROZOLE
     Dosage: 2.5 MG, QD
     Route: 048
     Dates: start: 20191023, end: 20191210
  3. VITAMIN C [Concomitant]
     Active Substance: ASCORBIC ACID
     Indication: PRODUCT USED FOR UNKNOWN INDICATION
     Dosage: 1 DF, QD
     Route: 048
  4. VITAMIN D3 [Concomitant]
     Active Substance: CHOLECALCIFEROL
     Indication: PRODUCT USED FOR UNKNOWN INDICATION
     Dosage: 1 DF, QD
     Route: 048
  5. KISQALI [Suspect]
     Active Substance: RIBOCICLIB
     Dosage: 600 MG, QD
     Route: 048
     Dates: start: 20191023, end: 20191210
  6. KISQALI [Suspect]
     Active Substance: RIBOCICLIB
     Dosage: 600 MG, QD
     Route: 048
     Dates: start: 20191228
  7. FEMARA [Suspect]
     Active Substance: LETROZOLE
     Dosage: 2.5 MG
     Route: 048
     Dates: start: 20191228
  8. LOSARTAN. [Suspect]
     Active Substance: LOSARTAN
     Indication: HYPERTENSION
     Dosage: 50 MG, QD
     Route: 048
  9. KISQALI [Suspect]
     Active Substance: RIBOCICLIB
     Indication: BREAST CANCER METASTATIC
     Dosage: 600 MG, QD (200 MG)
     Route: 048
     Dates: start: 20190917, end: 201912
  10. KISQALI [Suspect]
     Active Substance: RIBOCICLIB
     Dosage: 600 MG, QD (200 MG)
     Route: 048
  11. DENOSUMAB [Concomitant]
     Active Substance: DENOSUMAB
     Indication: METASTASES TO BONE
     Dosage: UNK UNK, QMO
     Route: 058
  12. FEMARA [Suspect]
     Active Substance: LETROZOLE
     Indication: BREAST CANCER
     Dosage: 2.5 MG, QD
     Route: 048
     Dates: start: 20190917, end: 201912
  13. FEMARA [Suspect]
     Active Substance: LETROZOLE
     Dosage: 2.5 MG, QD
     Route: 048

REACTIONS (9)
  - Headache [Recovered/Resolved]
  - Agitation [Recovered/Resolved]
  - Pneumonia [Recovered/Resolved]
  - Pneumonitis [Recovered/Resolved]
  - Cough [Recovering/Resolving]
  - Gastrooesophageal reflux disease [Recovered/Resolved]
  - Back pain [Recovered/Resolved]
  - Influenza [Recovered/Resolved]
  - Diarrhoea [Recovered/Resolved]

NARRATIVE: CASE EVENT DATE: 201912
